FAERS Safety Report 4941758-2 (Version None)
Quarter: 2006Q1

REPORT INFORMATION
  Report Type: 
  Country: None (occurrence: None)
  Receive Date: 20060307
  Receipt Date: 20060224
  Transmission Date: 20060701
  Serious: Yes (Other)
  Sender: FDA-Public Use
  Company Number: 200610189BVD

PATIENT
  Age: 35 Year
  Sex: Male

DRUGS (4)
  1. AVELOX [Suspect]
     Indication: PNEUMONIA
     Dosage: 400 MG, TOTAL DAILY
     Dates: start: 20060126, end: 20060129
  2. LAIF [Concomitant]
  3. ACC [Concomitant]
  4. SINUPRET [Concomitant]

REACTIONS (2)
  - MUSCLE TWITCHING [None]
  - MYOCLONUS [None]
